FAERS Safety Report 5676048-6 (Version None)
Quarter: 2008Q1

REPORT INFORMATION
  Report Type: 
  Country: None (occurrence: None)
  Receive Date: 20080321
  Receipt Date: 20080313
  Transmission Date: 20080703
  Serious: Yes (Other)
  Sender: FDA-Public Use
  Company Number: CH-JNJFOC-20080303342

PATIENT
  Sex: Male

DRUGS (13)
  1. SPORANOX [Suspect]
     Indication: DERMATOPHYTOSIS
     Route: 048
  2. DURAGESIC-100 [Suspect]
     Indication: DRUG USE FOR UNKNOWN INDICATION
     Route: 062
  3. PREDNISON [Concomitant]
     Route: 065
  4. IMUREK [Concomitant]
     Route: 065
  5. PROGRAF [Concomitant]
     Route: 065
  6. RENAGEL [Concomitant]
     Route: 065
  7. RESONIUM [Concomitant]
     Dosage: IN DAYS FREE OF DIALYSIS
     Route: 065
  8. CA-ACETAT [Concomitant]
     Route: 065
  9. ROCALTROL [Concomitant]
     Route: 065
  10. VIDE [Concomitant]
     Route: 065
  11. FLUVOXAMINE MALEATE [Concomitant]
     Route: 065
  12. TEMESTA [Concomitant]
     Route: 065
  13. NEXIUM [Concomitant]
     Route: 065

REACTIONS (1)
  - TRICHOPHYTIC GRANULOMA [None]
